FAERS Safety Report 24086981 (Version 3)
Quarter: 2024Q3

REPORT INFORMATION
  Report Type: Report from Study
  Country: US (occurrence: US)
  Receive Date: 20240713
  Receipt Date: 20240806
  Transmission Date: 20241017
  Serious: Yes (Hospitalization, Other)
  Sender: ABBVIE
  Company Number: US-ABBVIE-5819239

PATIENT
  Sex: Male
  Weight: 118 kg

DRUGS (2)
  1. HUMIRA [Suspect]
     Active Substance: ADALIMUMAB
     Indication: Psoriasis
     Dosage: FORM STRENGTH: 40 MILLIGRAM
     Route: 058
     Dates: start: 20171130
  2. HUMIRA [Suspect]
     Active Substance: ADALIMUMAB
     Indication: Psoriatic arthropathy
     Dosage: FORM STRENGTH: 40 MILLIGRAM
     Route: 058
     Dates: start: 20210414

REACTIONS (11)
  - Cerebrovascular accident [Recovered/Resolved]
  - Peripheral swelling [Recovered/Resolved]
  - Immunodeficiency [Unknown]
  - Hypoaesthesia [Recovered/Resolved]
  - Hypoacusis [Not Recovered/Not Resolved]
  - Skin haemorrhage [Unknown]
  - Skin plaque [Recovered/Resolved]
  - Skin fissures [Unknown]
  - Hypoaesthesia [Unknown]
  - Scab [Unknown]
  - Rash [Unknown]

NARRATIVE: CASE EVENT DATE: 20220101
